FAERS Safety Report 24429162 (Version 1)
Quarter: 2024Q4

REPORT INFORMATION
  Report Type: Spontaneous
  Country: US (occurrence: US)
  Receive Date: 20241011
  Receipt Date: 20241011
  Transmission Date: 20250115
  Serious: Yes (Hospitalization, Other)
  Sender: ELI LILLY AND CO
  Company Number: US-ELI_LILLY_AND_COMPANY-US202410000554

PATIENT
  Age: 63 Year
  Sex: Female

DRUGS (4)
  1. BASAGLAR [Suspect]
     Active Substance: INSULIN GLARGINE
     Indication: Diabetes mellitus
     Dosage: 36 U, DAILY
     Route: 065
  2. HUMALOG [Suspect]
     Active Substance: INSULIN LISPRO
     Indication: Diabetes mellitus
     Dosage: UNK UNK, UNKNOWN
     Route: 065
  3. NOVOLOG [Suspect]
     Active Substance: INSULIN ASPART
     Indication: Diabetes mellitus
     Dosage: UNK UNK, UNKNOWN
     Route: 065
  4. METOPROLOL [Concomitant]
     Active Substance: METOPROLOL
     Indication: Product used for unknown indication

REACTIONS (18)
  - Hallucination [Unknown]
  - Coma [Unknown]
  - Road traffic accident [Unknown]
  - Back injury [Unknown]
  - Generalised oedema [Unknown]
  - Blindness [Unknown]
  - Schizophrenia [Unknown]
  - Fall [Unknown]
  - Renal cell carcinoma [Unknown]
  - Staphylococcal infection [Unknown]
  - Hepatic encephalopathy [Unknown]
  - Blood glucose increased [Unknown]
  - Restless legs syndrome [Unknown]
  - Rib deformity [Unknown]
  - Weight decreased [Unknown]
  - Neuralgia [Unknown]
  - Pain [Unknown]
  - Blood glucose decreased [Unknown]

NARRATIVE: CASE EVENT DATE: 20230101
